FAERS Safety Report 9171527 (Version 1)
Quarter: 2013Q1

REPORT INFORMATION
  Report Type: Spontaneous
  Country: US (occurrence: US)
  Receive Date: 20130319
  Receipt Date: 20130319
  Transmission Date: 20140127
  Serious: Yes (Death, Hospitalization)
  Sender: FDA-Public Use
  Company Number: US-GLAXOSMITHKLINE-A0857331A

PATIENT
  Age: 68 Year
  Sex: Female

DRUGS (11)
  1. AVANDIA [Suspect]
     Indication: TYPE 2 DIABETES MELLITUS
     Dosage: 8MG PER DAY
     Route: 048
  2. GLUCOPHAGE [Concomitant]
  3. ZOCOR [Concomitant]
  4. IRON SULFATE [Concomitant]
  5. ATROVENT [Concomitant]
  6. NOVOLIN [Concomitant]
  7. DIOVAN [Concomitant]
  8. CARDIZEM [Concomitant]
  9. EVISTA [Concomitant]
  10. ULTRAM [Concomitant]
  11. PREVACID [Concomitant]

REACTIONS (4)
  - Cardio-respiratory arrest [Fatal]
  - Coronary artery disease [Fatal]
  - Arterial occlusive disease [Unknown]
  - Cardiac disorder [Unknown]
